FAERS Safety Report 11676422 (Version 1)
Quarter: 2015Q4

REPORT INFORMATION
  Report Type: Spontaneous
  Country: US (occurrence: US)
  Receive Date: 20151027
  Receipt Date: 20151027
  Transmission Date: 20160304
  Serious: No
  Sender: FDA-Public Use
  Company Number: US-ELI_LILLY_AND_COMPANY-US201009006336

PATIENT
  Age: 77 Year
  Sex: Female

DRUGS (2)
  1. FORTEO [Suspect]
     Active Substance: TERIPARATIDE
     Dosage: UNK, UNKNOWN
  2. CALCIUM [Concomitant]
     Active Substance: CALCIUM

REACTIONS (3)
  - Nephrolithiasis [Unknown]
  - Blood alkaline phosphatase increased [Recovered/Resolved]
  - Vitamin D increased [Unknown]
